FAERS Safety Report 5812880-3 (Version None)
Quarter: 2008Q3

REPORT INFORMATION
  Report Type: 
  Country: None (occurrence: None)
  Receive Date: 20080717
  Receipt Date: 20070808
  Transmission Date: 20090109
  Serious: No
  Sender: FDA-Public Use
  Company Number: A0654540A

PATIENT
  Age: 47 Year
  Sex: Male

DRUGS (1)
  1. NICORETTE [Suspect]
     Dosage: 24GUM PER DAY
     Route: 002

REACTIONS (4)
  - DYSGEUSIA [None]
  - INTENTIONAL DRUG MISUSE [None]
  - PHARMACEUTICAL PRODUCT COMPLAINT [None]
  - RETCHING [None]
